FAERS Safety Report 7241771 (Version 2)
Quarter: 2014Q3

REPORT INFORMATION
  Report Type: Spontaneous
  Country: US (occurrence: None)
  Receive Date: 20091228
  Receipt Date: 20140725
  Transmission Date: 20150326
  Serious: Yes (Other)
  Sender: FDA-Public Use
  Company Number: 2009S1008981

PATIENT
  Age: 58 Year
  Sex: Male
  Weight: 71 kg

DRUGS (4)
  1. LISINOPRIL/HYDROCHLOROTHIAZIDE (HYDROCHLOROTHIAZIDE, LISINOPRIL) [Concomitant]
  2. ASPIRIN (ACETYLSALICYLIC ACID) [Concomitant]
     Active Substance: ASPIRIN
  3. PHOSPHO-SODA [Suspect]
     Active Substance: SODIUM PHOSPHATE, DIBASIC\SODIUM PHOSPHATE, MONOBASIC
     Indication: COLONOSCOPY
     Dosage: TOTAL;PO
     Route: 048
     Dates: start: 20051215, end: 20051215
  4. CENTRUM (VITAMINS NOS, MINERALS NOS) [Concomitant]

REACTIONS (1)
  - Renal impairment [None]

NARRATIVE: CASE EVENT DATE: 20051223
